FAERS Safety Report 9924524 (Version 1)
Quarter: 2014Q1

REPORT INFORMATION
  Report Type: Spontaneous
  Country: DE (occurrence: None)
  Receive Date: 20140220
  Receipt Date: 20140220
  Transmission Date: 20141002
  Serious: No
  Sender: FDA-Public Use
  Company Number: 1402-0348

PATIENT
  Age: 79 Year
  Sex: Female

DRUGS (1)
  1. EYLEA (AFLIBERCEPT) (SOLUTION FOR INJECTION) (AFLIBERCEPT) [Suspect]
     Indication: AGE-RELATED MACULAR DEGENERATION
     Dates: start: 20140107

REACTIONS (3)
  - Blindness [None]
  - Vitreous detachment [None]
  - Vitreous floaters [None]
